FAERS Safety Report 9680261 (Version 7)
Quarter: 2014Q2

REPORT INFORMATION
  Report Type: Spontaneous
  Country: US (occurrence: US)
  Receive Date: 20131111
  Receipt Date: 20140515
  Transmission Date: 20141212
  Serious: No
  Sender: FDA-Public Use
  Company Number: US-BIOGENIDEC-2013BI106166

PATIENT
  Age: 35 Year
  Sex: Female

DRUGS (4)
  1. AVONEX [Suspect]
     Indication: MULTIPLE SCLEROSIS
     Route: 030
  2. AVONEX [Suspect]
     Indication: MULTIPLE SCLEROSIS
     Route: 030
  3. AVONEX [Suspect]
     Indication: MULTIPLE SCLEROSIS
     Route: 030
     Dates: start: 20131007, end: 20140424
  4. AVONEX [Suspect]
     Indication: MULTIPLE SCLEROSIS

REACTIONS (26)
  - Paralysis [Recovered/Resolved]
  - Hypoaesthesia [Not Recovered/Not Resolved]
  - Skin irritation [Not Recovered/Not Resolved]
  - Energy increased [Recovered/Resolved]
  - Wrong technique in drug usage process [Recovered/Resolved]
  - Weight increased [Not Recovered/Not Resolved]
  - Urinary incontinence [Recovered/Resolved]
  - Intentional product misuse [Recovered/Resolved]
  - Gait disturbance [Not Recovered/Not Resolved]
  - General symptom [Recovered/Resolved]
  - Tremor [Not Recovered/Not Resolved]
  - Burning sensation [Not Recovered/Not Resolved]
  - Injection site pain [Recovered/Resolved]
  - Palpitations [Unknown]
  - Influenza like illness [Recovered/Resolved]
  - Rash pruritic [Not Recovered/Not Resolved]
  - Injection site paraesthesia [Unknown]
  - Chills [Recovered/Resolved]
  - Pyrexia [Recovered/Resolved]
  - Pain [Not Recovered/Not Resolved]
  - Fatigue [Not Recovered/Not Resolved]
  - Head discomfort [Recovered/Resolved with Sequelae]
  - Emotional distress [Not Recovered/Not Resolved]
  - Insomnia [Recovered/Resolved]
  - Muscular weakness [Recovered/Resolved]
  - Feeling abnormal [Recovered/Resolved]
